FAERS Safety Report 8981890 (Version 2)
Quarter: 2013Q1

REPORT INFORMATION
  Report Type: Spontaneous
  Country: DE (occurrence: DE)
  Receive Date: 20121223
  Receipt Date: 20130125
  Transmission Date: 20140127
  Serious: Yes (Life-Threatening)
  Sender: FDA-Public Use
  Company Number: PHHY2012DE114955

PATIENT
  Sex: Male

DRUGS (3)
  1. KARIL [Suspect]
     Indication: OSTEONECROSIS
     Dosage: 100 IU,THREE TIMES A WEEK
     Route: 042
     Dates: start: 20121120, end: 20121203
  2. SIMVASTATIN [Concomitant]
  3. ARCOXIA [Concomitant]
     Dosage: UNK UKN, UNK
     Dates: start: 2011

REACTIONS (3)
  - Stevens-Johnson syndrome [Recovered/Resolved]
  - Skin necrosis [Recovered/Resolved]
  - Anaphylactic shock [Not Recovered/Not Resolved]
